FAERS Safety Report 7241566-6 (Version None)
Quarter: 2011Q1

REPORT INFORMATION
  Report Type: 
  Country: None (occurrence: None)
  Receive Date: 20110124
  Receipt Date: 20110113
  Transmission Date: 20110831
  Serious: Yes (Disabling, Other)
  Sender: FDA-Public Use
  Company Number: US-MERCK-1008USA00568

PATIENT
  Age: 58 Year
  Sex: Female
  Weight: 50 kg

DRUGS (2)
  1. BONIVA [Suspect]
     Route: 065
     Dates: start: 20081001, end: 20081101
  2. FOSAMAX [Suspect]
     Indication: OSTEOPOROSIS
     Route: 048
     Dates: start: 20060111, end: 20081001

REACTIONS (37)
  - BEREAVEMENT [None]
  - CHRONIC SINUSITIS [None]
  - GINGIVAL DISORDER [None]
  - TREMOR [None]
  - TOBACCO WITHDRAWAL SYMPTOMS [None]
  - GINGIVAL BLEEDING [None]
  - VASCULAR CALCIFICATION [None]
  - PRESBYOPIA [None]
  - EXOSTOSIS [None]
  - MUSCLE STRAIN [None]
  - ASTIGMATISM [None]
  - INTERVERTEBRAL DISC DEGENERATION [None]
  - ACTINOMYCOSIS [None]
  - ADVERSE DRUG REACTION [None]
  - BACK PAIN [None]
  - DIZZINESS [None]
  - IMPAIRED HEALING [None]
  - WEIGHT INCREASED [None]
  - PERIODONTITIS [None]
  - ARTHRALGIA [None]
  - OSTEONECROSIS OF JAW [None]
  - FATIGUE [None]
  - SEBORRHOEIC KERATOSIS [None]
  - DENTAL CARIES [None]
  - OSTEOPENIA [None]
  - DEPRESSION [None]
  - BONE DENSITY DECREASED [None]
  - PAPILLOMA [None]
  - DIARRHOEA [None]
  - AORTIC CALCIFICATION [None]
  - ORAL DISORDER [None]
  - OSTEOMYELITIS [None]
  - FISTULA [None]
  - SWELLING FACE [None]
  - SPINAL OSTEOARTHRITIS [None]
  - SINUS DISORDER [None]
  - DYSGEUSIA [None]
